FAERS Safety Report 19353393 (Version 1)
Quarter: 2021Q2

REPORT INFORMATION
  Report Type: Report from Study
  Country: None (occurrence: BR)
  Receive Date: 20210601
  Receipt Date: 20210601
  Transmission Date: 20210717
  Serious: Yes (Other)
  Sender: FDA-Public Use
  Company Number: BR-ABBVIE-21P-020-3928844-00

PATIENT
  Sex: Female
  Weight: 30 kg

DRUGS (3)
  1. DEPAKOTE [Suspect]
     Active Substance: DIVALPROEX SODIUM
     Dosage: SHE USED TO TAKE TWICE A DAY
     Route: 048
  2. ETIRA [Suspect]
     Active Substance: LEVETIRACETAM
     Indication: PETIT MAL EPILEPSY
     Dosage: IN THE MORNING, AT NIGHT. STOPPED IN THE BEGGING OF 2021.
     Route: 048
     Dates: start: 202001, end: 2021
  3. DEPAKOTE [Suspect]
     Active Substance: DIVALPROEX SODIUM
     Indication: EPILEPSY
     Dosage: 3 OF 250 (NOT SPECIFIED),  3 TIMES A DAY
     Route: 048
     Dates: start: 201908

REACTIONS (5)
  - Agitation [Unknown]
  - Muscle spasms [Unknown]
  - Off label use [Unknown]
  - Petit mal epilepsy [Unknown]
  - Behaviour disorder [Unknown]
